FAERS Safety Report 10632319 (Version 1)
Quarter: 2014Q4

REPORT INFORMATION
  Report Type: Spontaneous
  Country: US (occurrence: US)
  Receive Date: 20141205
  Receipt Date: 20141205
  Transmission Date: 20150529
  Serious: No
  Sender: FDA-Public Use
  Company Number: US-BRISTOL-MYERS SQUIBB COMPANY-21168109

PATIENT
  Age: 63 Year
  Sex: Female
  Weight: 82.08 kg

DRUGS (10)
  1. CLOBETASOL [Concomitant]
     Active Substance: CLOBETASOL
  2. ORENCIA [Suspect]
     Active Substance: ABATACEPT
     Indication: RHEUMATOID ARTHRITIS
     Route: 058
  3. IRON TABLETS [Concomitant]
  4. METHOTREXATE [Concomitant]
     Active Substance: METHOTREXATE
  5. HYDROCODONE, ACETAMINOPHEN [Concomitant]
     Active Substance: ACETAMINOPHEN\HYDROCODONE BITARTRATE
     Dosage: 1DF = 10-300MG TABLET
  6. FLEXERIL [Concomitant]
     Active Substance: CYCLOBENZAPRINE HYDROCHLORIDE
     Dosage: TAB
  7. ALEVE [Concomitant]
     Active Substance: NAPROXEN SODIUM
     Dosage: CAPS
  8. ANASTROZOLE. [Concomitant]
     Active Substance: ANASTROZOLE
     Dosage: TAB
  9. ESCITALOPRAM [Concomitant]
     Active Substance: ESCITALOPRAM OXALATE
     Dosage: TAB
  10. AZOR [Concomitant]
     Active Substance: AMLODIPINE BESYLATE\OLMESARTAN MEDOXOMIL
     Dosage: TAB: 10-20MG

REACTIONS (4)
  - Stomatitis [Unknown]
  - Tooth extraction [Unknown]
  - Staphylococcal infection [Unknown]
  - Joint swelling [Unknown]

NARRATIVE: CASE EVENT DATE: 2014
